FAERS Safety Report 17532039 (Version 1)
Quarter: 2020Q1

REPORT INFORMATION
  Report Type: Spontaneous
  Country: QA (occurrence: QA)
  Receive Date: 20200312
  Receipt Date: 20200312
  Transmission Date: 20200409
  Serious: Yes (Hospitalization)
  Sender: FDA-Public Use
  Company Number: QA-PFIZER INC-2020105188

PATIENT
  Age: 20 Year
  Sex: Male

DRUGS (3)
  1. CLOXACILLIN [Suspect]
     Active Substance: CLOXACILLIN
     Dosage: 1 G, 4X/DAY (EVERY 6 HOURS)
     Route: 048
  2. PIPERACILLIN/TAZOBACTAM [Suspect]
     Active Substance: PIPERACILLIN SODIUM\TAZOBACTAM SODIUM
     Indication: PNEUMONIA
     Dosage: 4.5 G, 3X/DAY (EVERY 8 HOURS, DAY 25 -28)
  3. CLOXACILLIN [Suspect]
     Active Substance: CLOXACILLIN
     Indication: PNEUMONIA
     Dosage: 2 G, 4X/DAY (EVERY 6 HOURS)
     Route: 042

REACTIONS (3)
  - Eosinophilic pleural effusion [Recovered/Resolved]
  - Allergic eosinophilia [Recovered/Resolved]
  - Drug hypersensitivity [Unknown]
